FAERS Safety Report 8384394-0 (Version None)
Quarter: 2012Q2

REPORT INFORMATION
  Report Type: 
  Country: None (occurrence: None)
  Receive Date: 20120524
  Receipt Date: 20120517
  Transmission Date: 20120825
  Serious: Yes (Hospitalization)
  Sender: FDA-Public Use
  Company Number: US-GLAXOSMITHKLINE-A0897820A

PATIENT
  Age: 53 Year
  Sex: Male
  Weight: 95.5 kg

DRUGS (2)
  1. HUMULIN R [Concomitant]
  2. AVANDIA [Suspect]
     Indication: DIABETES MELLITUS
     Dosage: 4MG PER DAY
     Route: 048
     Dates: start: 20010301, end: 20070201

REACTIONS (5)
  - HYPERLIPIDAEMIA [None]
  - CARDIAC DISORDER [None]
  - VASCULAR INJURY [None]
  - CARDIAC FAILURE CONGESTIVE [None]
  - PERIPHERAL VASCULAR DISORDER [None]
